FAERS Safety Report 14614398 (Version 1)
Quarter: 2018Q1

REPORT INFORMATION
  Report Type: Spontaneous
  Country: CN (occurrence: CN)
  Receive Date: 20180308
  Receipt Date: 20180308
  Transmission Date: 20180509
  Serious: Yes (Other)
  Sender: FDA-Public Use
  Company Number: CN-NAPPMUNDI-GBR-2018-0053824

PATIENT
  Age: 54 Year
  Sex: Male

DRUGS (1)
  1. OXYCODONE HYDROCHLORIDE. [Suspect]
     Active Substance: OXYCODONE HYDROCHLORIDE
     Indication: CANCER PAIN
     Dosage: 220 MG, BID
     Route: 048
     Dates: start: 20171215, end: 20171225

REACTIONS (6)
  - Disorientation [Recovering/Resolving]
  - Reduced facial expression [Recovering/Resolving]
  - Pupillary light reflex tests abnormal [Recovering/Resolving]
  - Hallucination [Recovering/Resolving]
  - Miosis [Recovering/Resolving]
  - Thinking abnormal [Recovering/Resolving]

NARRATIVE: CASE EVENT DATE: 20171215
